FAERS Safety Report 26197249 (Version 1)
Quarter: 2025Q4

REPORT INFORMATION
  Report Type: Spontaneous
  Country: US (occurrence: US)
  Receive Date: 20251224
  Receipt Date: 20251224
  Transmission Date: 20260118
  Serious: No
  Sender: MADRIGAL PHARMACEUTICALS
  Company Number: US-MADRIGAL PHARMACEUTICALS, INC-2025USREZ15401

PATIENT

DRUGS (2)
  1. REZDIFFRA [Suspect]
     Active Substance: RESMETIROM
     Indication: Hepatic fibrosis
     Dosage: UNK, UNKNOWN
     Route: 048
     Dates: end: 2025
  2. REZDIFFRA [Suspect]
     Active Substance: RESMETIROM
     Indication: Hepatic cirrhosis

REACTIONS (2)
  - Pruritus [Unknown]
  - Product use in unapproved indication [Unknown]
